FAERS Safety Report 16982547 (Version 1)
Quarter: 2019Q4

REPORT INFORMATION
  Report Type: Spontaneous
  Country: HR (occurrence: HR)
  Receive Date: 20191101
  Receipt Date: 20191101
  Transmission Date: 20200122
  Serious: Yes (Other)
  Sender: FDA-Public Use
  Company Number: HR-AMGEN-HRVSP2019178490

PATIENT
  Age: 37 Year
  Sex: Male

DRUGS (10)
  1. ARANESP [Suspect]
     Active Substance: DARBEPOETIN ALFA
     Indication: NORMOCHROMIC ANAEMIA
     Dosage: UNK
     Route: 065
     Dates: start: 201710
  2. ARANESP [Suspect]
     Active Substance: DARBEPOETIN ALFA
     Dosage: 140 MICROGRAM, QMO
     Route: 065
     Dates: start: 20180125
  3. ARANESP [Suspect]
     Active Substance: DARBEPOETIN ALFA
     Dosage: 160 MICROGRAM, QMO
     Route: 065
     Dates: start: 20180222
  4. ARANESP [Suspect]
     Active Substance: DARBEPOETIN ALFA
     Dosage: 100 MICROGRAM, QMO
     Route: 065
     Dates: start: 20171128
  5. ARANESP [Suspect]
     Active Substance: DARBEPOETIN ALFA
     Dosage: 80 MICROGRAM, Q2WK
     Route: 065
     Dates: start: 20181018
  6. ARANESP [Suspect]
     Active Substance: DARBEPOETIN ALFA
     Dosage: 100 MICROGRAM, Q2WK
     Route: 065
     Dates: start: 20190110
  7. ARANESP [Suspect]
     Active Substance: DARBEPOETIN ALFA
     Dosage: 120 MICROGRAM, Q2WK
     Route: 065
     Dates: start: 20190208
  8. VENOFER [Concomitant]
     Active Substance: IRON SUCROSE
     Dosage: UNK UNK, QWK
  9. ARANESP [Suspect]
     Active Substance: DARBEPOETIN ALFA
     Dosage: 120 MICROGRAM, QMO
     Route: 065
     Dates: start: 20171227
  10. ARANESP [Suspect]
     Active Substance: DARBEPOETIN ALFA
     Dosage: 50 MICROGRAM
     Route: 065
     Dates: start: 20171016

REACTIONS (7)
  - Hypoalbuminaemia [Unknown]
  - Inguinal hernia [Unknown]
  - Appendicectomy [Unknown]
  - Drug ineffective [Unknown]
  - Adhesiolysis [Unknown]
  - Arteriovenous fistula operation [Unknown]
  - Weight abnormal [Unknown]

NARRATIVE: CASE EVENT DATE: 2018
